FAERS Safety Report 7934952-X (Version None)
Quarter: 2011Q4

REPORT INFORMATION
  Report Type: 
  Country: None (occurrence: None)
  Receive Date: 20111122
  Receipt Date: 20111115
  Transmission Date: 20120403
  Serious: Yes (Death, Hospitalization)
  Sender: FDA-Public Use
  Company Number: GB-GENZYME-CLOF-1001747

PATIENT
  Sex: Female

DRUGS (1)
  1. EVOLTRA [Suspect]
     Indication: ACUTE MYELOID LEUKAEMIA
     Dosage: 34 MG, QD
     Route: 042
     Dates: start: 20070910, end: 20070914

REACTIONS (3)
  - LUNG INFECTION PSEUDOMONAL [None]
  - NEUTROPENIC SEPSIS [None]
  - BLOOD BILIRUBIN INCREASED [None]
